FAERS Safety Report 6272688-4 (Version None)
Quarter: 2009Q3

REPORT INFORMATION
  Report Type: 
  Country: None (occurrence: None)
  Receive Date: 20090715
  Receipt Date: 20090715
  Transmission Date: 20100115
  Serious: Yes (Life-Threatening)
  Sender: FDA-Public Use
  Company Number: None

PATIENT
  Age: 64 Year
  Sex: Female
  Weight: 74.8435 kg

DRUGS (2)
  1. ZICAM COLD REMEDY NASAL GEL ZICAM LLC/MATRIXX INITIATIVES, INC [Suspect]
     Indication: NASOPHARYNGITIS
     Dosage: 1-2 SPRAYS AM + PM NASAL
     Route: 045
     Dates: start: 20090501, end: 20090514
  2. ZICAM COLD REMEDY NASAL GEL ZICAM LLC/MATRIXX INITIATIVES, INC [Suspect]
     Indication: SINUSITIS
     Dosage: 1-2 SPRAYS AM + PM NASAL
     Route: 045
     Dates: start: 20090501, end: 20090514

REACTIONS (2)
  - AGEUSIA [None]
  - ANOSMIA [None]
